FAERS Safety Report 6984951-X (Version None)
Quarter: 2010Q3

REPORT INFORMATION
  Report Type: 
  Country: None (occurrence: None)
  Receive Date: 20100915
  Receipt Date: 20100903
  Transmission Date: 20110219
  Serious: No
  Sender: FDA-Public Use
  Company Number: US-ELI_LILLY_AND_COMPANY-US201009002758

PATIENT
  Sex: Female

DRUGS (3)
  1. CYMBALTA [Suspect]
     Indication: FIBROMYALGIA
     Dosage: 30 MG, DAILY (1/D)
  2. CYMBALTA [Suspect]
     Dosage: 60 MG, DAILY (1/D)
  3. CYMBALTA [Suspect]
     Dosage: 30 MG, DAILY (1/D)
     Dates: start: 20100721

REACTIONS (18)
  - ACTIVITIES OF DAILY LIVING IMPAIRED [None]
  - BLOOD PRESSURE FLUCTUATION [None]
  - CLUMSINESS [None]
  - DIZZINESS [None]
  - DRUG INEFFECTIVE [None]
  - DRUG WITHDRAWAL SYNDROME [None]
  - GAIT DISTURBANCE [None]
  - HEADACHE [None]
  - HEPATIC PAIN [None]
  - HYPERSENSITIVITY [None]
  - LIVER DISORDER [None]
  - MALAISE [None]
  - NAUSEA [None]
  - RENAL DISORDER [None]
  - SINUSITIS [None]
  - THOUGHT BLOCKING [None]
  - VISION BLURRED [None]
  - VISUAL FIELD DEFECT [None]
